FAERS Safety Report 14163951 (Version 1)
Quarter: 2017Q4

REPORT INFORMATION
  Report Type: Spontaneous
  Country: FR (occurrence: FR)
  Receive Date: 20171106
  Receipt Date: 20171106
  Transmission Date: 20180321
  Serious: Yes (Hospitalization, Other)
  Sender: FDA-Public Use
  Company Number: FR-ALLERGAN-1763560US

PATIENT
  Age: 30 Year
  Sex: Female

DRUGS (4)
  1. CHORIONIC GONADOTROPIN [Suspect]
     Active Substance: CHORIOGONADOTROPIN ALFA
     Indication: ASSISTED FERTILISATION
     Dosage: 1000 UNITS, SINGLE
     Route: 030
     Dates: start: 20170422, end: 20170422
  2. TRIPTORELIN PAMOATE - BP [Suspect]
     Active Substance: TRIPTORELIN PAMOATE
     Indication: ASSISTED FERTILISATION
     Dosage: 2 DF, SINGLE
     Route: 058
     Dates: start: 20170422, end: 20170422
  3. FERTISTARTKIT [Suspect]
     Active Substance: MENOTROPINS
     Indication: ASSISTED FERTILISATION
     Dosage: 450 IU, UNK
     Route: 058
     Dates: start: 20170414, end: 20170421
  4. CETROTIDE [Suspect]
     Active Substance: CETRORELIX ACETATE
     Indication: ASSISTED FERTILISATION
     Dosage: 0.25 MG, 4 DAYS
     Route: 058
     Dates: start: 20170418, end: 20170422

REACTIONS (5)
  - Thrombosis [Unknown]
  - Incorrect dose administered [Unknown]
  - Peritoneal haemorrhage [Recovered/Resolved]
  - Off label use [Unknown]
  - Anaemia [None]

NARRATIVE: CASE EVENT DATE: 201704
